FAERS Safety Report 10045654 (Version 1)
Quarter: 2014Q1

REPORT INFORMATION
  Report Type: Spontaneous
  Country: US (occurrence: US)
  Receive Date: 20140328
  Receipt Date: 20140328
  Transmission Date: 20141002
  Serious: Yes (Other)
  Sender: FDA-Public Use
  Company Number: US-ASTRAZENECA-2014SE20187

PATIENT
  Age: 30210 Day
  Sex: Male
  Weight: 85.3 kg

DRUGS (1)
  1. CAPRELSA [Suspect]
     Indication: THYROID CANCER
     Route: 048
     Dates: start: 20140224

REACTIONS (1)
  - Electrocardiogram QT prolonged [Unknown]
